FAERS Safety Report 4467914-8 (Version None)
Quarter: 2004Q3

REPORT INFORMATION
  Report Type: 
  Country: None (occurrence: None)
  Receive Date: 20040930
  Receipt Date: 20040924
  Transmission Date: 20050211
  Serious: Yes (Hospitalization)
  Sender: FDA-Public Use
  Company Number: 2004-02946

PATIENT
  Age: 50 Year
  Sex: Male

DRUGS (1)
  1. IMMUCYST (BCG - IT (CONNAUGHT) ), AVENTIS PASTEUR LTD., LOT  NOT REP, [Suspect]
     Indication: POLYP
     Dosage: B. IN., BLADDER
     Dates: start: 20040101

REACTIONS (6)
  - ARTHROPATHY [None]
  - BACK PAIN [None]
  - DRUG HYPERSENSITIVITY [None]
  - NEOPLASM RECURRENCE [None]
  - PYREXIA [None]
  - RECURRENT CANCER [None]
